FAERS Safety Report 6242550-1 (Version None)
Quarter: 2009Q2

REPORT INFORMATION
  Report Type: 
  Country: None (occurrence: None)
  Receive Date: 20090624
  Receipt Date: 20090623
  Transmission Date: 20091009
  Serious: Yes (Other)
  Sender: FDA-Public Use
  Company Number: JP-BAYER-200813063BYL

PATIENT
  Age: 83 Year
  Sex: Male
  Weight: 57 kg

DRUGS (20)
  1. NEXAVAR [Suspect]
     Indication: RENAL CELL CARCINOMA STAGE IV
     Dosage: TOTAL DAILY DOSE: 800 MG  UNIT DOSE: 200 MG
     Route: 048
     Dates: start: 20081117
  2. NEXAVAR [Suspect]
     Dosage: UNIT DOSE: 200 MG
     Route: 048
     Dates: start: 20081128, end: 20081205
  3. NEXAVAR [Suspect]
     Dosage: TOTAL DAILY DOSE: 400 MG  UNIT DOSE: 200 MG
     Route: 048
     Dates: start: 20090220, end: 20090313
  4. NEXAVAR [Suspect]
     Dosage: UNIT DOSE: 200 MG
     Route: 048
     Dates: start: 20090515
  5. SUTENT [Concomitant]
     Route: 048
  6. MAGMITT [Concomitant]
     Dosage: UNIT DOSE: 330 MG
     Route: 048
  7. HARNAL D [Concomitant]
     Dosage: UNIT DOSE: 0.2 MG
     Route: 048
  8. MAINTATE [Concomitant]
     Dosage: UNIT DOSE: 5 MG
     Route: 048
  9. AMLODIN OD [Concomitant]
     Dosage: UNIT DOSE: 5 MG
     Route: 048
     Dates: end: 20081117
  10. GASTER D [Concomitant]
     Dosage: UNIT DOSE: 10 MG
     Route: 048
     Dates: end: 20081117
  11. ASPIRIN [Concomitant]
     Dosage: UNIT DOSE: 100 MG
     Route: 048
     Dates: start: 20081105
  12. PANALDINE [Concomitant]
     Dosage: UNIT DOSE: 100 MG
     Route: 048
     Dates: start: 20081105, end: 20081205
  13. OLMETEC [Concomitant]
     Dosage: UNIT DOSE: 20 MG
     Route: 048
     Dates: start: 20081205
  14. OLMETEC [Concomitant]
     Dosage: UNIT DOSE: 20 MG
     Route: 048
     Dates: start: 20081113, end: 20081205
  15. ITOROL [Concomitant]
     Dosage: UNIT DOSE: 20 MG
     Route: 048
     Dates: start: 20081113
  16. LIPITOR [Concomitant]
     Dosage: UNIT DOSE: 10 MG
     Route: 048
     Dates: start: 20081117
  17. FAMOTIDINE D [Concomitant]
     Dosage: UNIT DOSE: 20 MG
     Route: 048
     Dates: start: 20081118
  18. PLAVIX [Concomitant]
     Dosage: UNIT DOSE: 75 MG
     Route: 048
     Dates: start: 20081205
  19. PL [Concomitant]
     Route: 048
     Dates: start: 20081121, end: 20081123
  20. FLUITRAN [Concomitant]
     Route: 048
     Dates: start: 20090123

REACTIONS (3)
  - CARDIAC FAILURE [None]
  - HEPATIC FUNCTION ABNORMAL [None]
  - HYPERTENSION [None]
